FAERS Safety Report 13192046 (Version 1)
Quarter: 2017Q1

REPORT INFORMATION
  Report Type: Spontaneous
  Country: US (occurrence: US)
  Receive Date: 20170206
  Receipt Date: 20170206
  Transmission Date: 20170428
  Serious: No
  Sender: FDA-Public Use
  Company Number: None

PATIENT
  Age: 55 Year
  Sex: Female

DRUGS (2)
  1. COPAXONE [Suspect]
     Active Substance: GLATIRAMER ACETATE
     Indication: MULTIPLE SCLEROSIS
  2. COPAXONE [Suspect]
     Active Substance: GLATIRAMER ACETATE
     Indication: OSTEOARTHRITIS

REACTIONS (5)
  - Injection site pruritus [None]
  - Injection site pain [None]
  - Injection site erythema [None]
  - Urticaria [None]
  - Contusion [None]

NARRATIVE: CASE EVENT DATE: 20170206
